FAERS Safety Report 15018090 (Version 10)
Quarter: 2019Q4

REPORT INFORMATION
  Report Type: Report from Study
  Country: TH (occurrence: TH)
  Receive Date: 20180615
  Receipt Date: 20191205
  Transmission Date: 20200122
  Serious: Yes (Death, Hospitalization)
  Sender: FDA-Public Use
  Company Number: TH-PFIZER INC-2018236212

PATIENT
  Age: 58 Year
  Sex: Female
  Weight: 54.9 kg

DRUGS (30)
  1. TOFACITINIB CITRATE [Suspect]
     Active Substance: TOFACITINIB CITRATE
     Indication: RHEUMATOID ARTHRITIS
     Dosage: 5 MG, 2X/DAY
     Route: 048
     Dates: start: 20150828, end: 20180605
  2. METHOTREXATE. [Concomitant]
     Active Substance: METHOTREXATE
     Indication: RHEUMATOID ARTHRITIS
     Dosage: 15 MG, WEEKLY
     Route: 048
     Dates: start: 20140506, end: 20180603
  3. THIAMINE. [Concomitant]
     Active Substance: THIAMINE
     Indication: SUPPLEMENTATION THERAPY
     Dosage: 100 MG, 3X/DAY
     Route: 048
     Dates: start: 20180810, end: 20180916
  4. AIR-X [DIMETICONE;SILICON DIOXIDE, COLLOIDAL] [Concomitant]
     Indication: PROPHYLAXIS AGAINST GASTROINTESTINAL ULCER
     Dosage: 80 MG, 3X/DAY
     Route: 048
     Dates: start: 20180804, end: 20180916
  5. MULTIVITAMINS [VITAMINS NOS] [Concomitant]
     Active Substance: VITAMINS
     Indication: SUPPLEMENTATION THERAPY
     Dosage: 1 DF, DAILY
     Route: 048
     Dates: start: 20180810, end: 20180831
  6. PREDNISOLONE. [Concomitant]
     Active Substance: PREDNISOLONE
     Dosage: 10 MG, 1X/DAY
     Route: 048
     Dates: start: 20180807, end: 20180916
  7. HYDROCORTISONE. [Concomitant]
     Active Substance: HYDROCORTISONE
     Indication: RHEUMATOID ARTHRITIS
     Dosage: 200 MG, 1X/DAY
     Route: 042
     Dates: start: 20180726, end: 20180812
  8. PLAVIX [Concomitant]
     Active Substance: CLOPIDOGREL BISULFATE
     Indication: CARDIAC ARREST
     Dosage: 300 MG, 1X/DAY
     Route: 048
     Dates: start: 20180705, end: 20180705
  9. PREVACID [Concomitant]
     Active Substance: LANSOPRAZOLE
     Indication: PROPHYLAXIS AGAINST GASTROINTESTINAL ULCER
     Dosage: 30 MG, 1X/DAY
     Route: 048
     Dates: start: 20180707, end: 20180916
  10. TRACE ELEMENT [Concomitant]
     Indication: ELECTROLYTE IMBALANCE
     Dosage: 10 ML, 1X/DAY
     Route: 048
     Dates: start: 20180817, end: 20180916
  11. OMEPRAZOLE. [Concomitant]
     Active Substance: OMEPRAZOLE
     Indication: PROPHYLAXIS AGAINST GASTROINTESTINAL ULCER
     Dosage: 20 MG, 2X/DAY
     Route: 048
     Dates: start: 20180522, end: 20180603
  12. ATENOLOL. [Concomitant]
     Active Substance: ATENOLOL
     Indication: HYPERTENSION
     Dosage: 50 MG, 1X/DAY
     Route: 048
     Dates: start: 20171121, end: 20180603
  13. BISOPROLOL [Concomitant]
     Active Substance: BISOPROLOL
     Indication: POST CARDIAC ARREST SYNDROME
     Dosage: 5 MG, 2X/DAY
     Route: 048
     Dates: start: 20180823, end: 20180916
  14. VITAMIN D2 [Concomitant]
     Active Substance: ERGOCALCIFEROL
     Indication: OSTEOPOROSIS PROPHYLAXIS
     Dosage: 40000 UNIT, 1 TIME PER WEEK
     Route: 048
     Dates: start: 20160526, end: 20180916
  15. ASPIRIN 81 [Concomitant]
     Active Substance: ASPIRIN
     Indication: POST CARDIAC ARREST SYNDROME
     Dosage: 81 MG, 1X/DAY
     Route: 048
     Dates: start: 20180706, end: 20180916
  16. NAPROXEN. [Concomitant]
     Active Substance: NAPROXEN
     Indication: RHEUMATOID ARTHRITIS
     Dosage: 375 MG, 2X/DAY
     Route: 048
     Dates: start: 20180522, end: 20180603
  17. ASPIRIN 81 [Concomitant]
     Active Substance: ASPIRIN
     Indication: CARDIAC ARREST
     Dosage: 300 MG, 1X/DAY
     Route: 048
     Dates: start: 20180705, end: 20180705
  18. PLASIL [METOCLOPRAMIDE] [Concomitant]
     Indication: PROPHYLAXIS AGAINST GASTROINTESTINAL ULCER
     Dosage: 10 MG, EVEY 6 HOURS
     Route: 042
     Dates: start: 20180817, end: 20180916
  19. MEROPENEM. [Concomitant]
     Active Substance: MEROPENEM
     Dosage: 2 G, 2X/DAY (EVERY 12 HOURS)
     Route: 042
     Dates: start: 20180727, end: 20180901
  20. XARATOR [Concomitant]
     Indication: DYSLIPIDAEMIA
     Dosage: 20 MG, 1X/DAY
     Route: 048
     Dates: start: 20180705, end: 20180915
  21. BISACODYL. [Concomitant]
     Active Substance: BISACODYL
     Indication: CONSTIPATION PROPHYLAXIS
     Dosage: 10 MG, 1X/DAY
     Route: 054
     Dates: start: 20180802, end: 20180915
  22. VANCOMYCIN [Concomitant]
     Active Substance: VANCOMYCIN
     Indication: INTERVERTEBRAL DISCITIS
     Dosage: 250 MG, 2X/DAY
     Route: 042
     Dates: start: 20180712, end: 20180715
  23. PLAVIX [Concomitant]
     Active Substance: CLOPIDOGREL BISULFATE
     Indication: POST CARDIAC ARREST SYNDROME
     Dosage: 75 MG, 1X/DAY
     Route: 048
     Dates: start: 20180706, end: 20180916
  24. ADRENALINE [EPINEPHRINE] [Concomitant]
     Active Substance: EPINEPHRINE
     Indication: CARDIAC ARREST
     Dosage: 1 AMP, EVERY 3 MIN
     Route: 042
     Dates: start: 20180705, end: 20180705
  25. PREDNISOLONE. [Concomitant]
     Active Substance: PREDNISOLONE
     Indication: RHEUMATOID ARTHRITIS
     Dosage: 5 MG, 2X/DAY
     Route: 048
     Dates: start: 20180522, end: 20180603
  26. FOLIC ACID. [Concomitant]
     Active Substance: FOLIC ACID
     Indication: SUPPLEMENTATION THERAPY
     Dosage: 5 MG, CYCLIC (5 DAYS PER WEEK)
     Route: 048
     Dates: start: 20130423, end: 20180603
  27. CALCIUM CARBONATE. [Concomitant]
     Active Substance: CALCIUM CARBONATE
     Indication: OSTEOPOROSIS PROPHYLAXIS
     Dosage: 600 MG, 2X/DAY
     Route: 048
     Dates: start: 20130423, end: 20180603
  28. MEROPENEM. [Concomitant]
     Active Substance: MEROPENEM
     Indication: INTERVERTEBRAL DISCITIS
     Dosage: 1 G, 2X/DAY
     Route: 042
     Dates: start: 20180629, end: 20180716
  29. CLOXACILLIN [Concomitant]
     Active Substance: CLOXACILLIN
     Indication: INTERVERTEBRAL DISCITIS
     Dosage: 2 G, EVERY 4 HOURS
     Route: 042
     Dates: start: 20180716, end: 20180727
  30. NAHCO3 [Concomitant]
     Active Substance: SODIUM BICARBONATE
     Indication: ELECTROLYTE IMBALANCE
     Dosage: 1500 MG, 3X/DAY
     Route: 048
     Dates: start: 20180814, end: 20180916

REACTIONS (2)
  - Intervertebral discitis [Recovered/Resolved]
  - Extradural abscess [Recovered/Resolved]

NARRATIVE: CASE EVENT DATE: 20180602
